FAERS Safety Report 18175675 (Version 2)
Quarter: 2020Q4

REPORT INFORMATION
  Report Type: Spontaneous
  Country: US (occurrence: US)
  Receive Date: 20200820
  Receipt Date: 20201028
  Transmission Date: 20210113
  Serious: Yes (Hospitalization, Other)
  Sender: FDA-Public Use
  Company Number: US-GILEAD-2020-0491251

PATIENT
  Sex: Male
  Weight: 76.19 kg

DRUGS (19)
  1. REYATAZ [Concomitant]
     Active Substance: ATAZANAVIR SULFATE
  2. CARVEDILOL. [Concomitant]
     Active Substance: CARVEDILOL
  3. TRUVADA [Suspect]
     Active Substance: EMTRICITABINE\TENOFOVIR DISOPROXIL FUMARATE
     Indication: HIV INFECTION
     Dosage: UNK
     Route: 048
     Dates: start: 201202, end: 201211
  4. ZIAGEN [Concomitant]
     Active Substance: ABACAVIR SULFATE
  5. FENOFIBRATE. [Concomitant]
     Active Substance: FENOFIBRATE
  6. GABAPENTIN. [Concomitant]
     Active Substance: GABAPENTIN
  7. BAYER ASPIRIN [Concomitant]
     Active Substance: ASPIRIN
  8. EPIVIR [Concomitant]
     Active Substance: LAMIVUDINE
  9. BACLOFEN. [Concomitant]
     Active Substance: BACLOFEN
  10. GENVOYA [Concomitant]
     Active Substance: COBICISTAT\ELVITEGRAVIR\EMTRICITABINE\TENOFOVIR ALAFENAMIDE FUMARATE
  11. TIVICAY [Concomitant]
     Active Substance: DOLUTEGRAVIR SODIUM
  12. CLOPIDOGREL [Concomitant]
     Active Substance: CLOPIDOGREL BISULFATE
  13. TRIUMEQ [Concomitant]
     Active Substance: ABACAVIR SULFATE\DOLUTEGRAVIR SODIUM\LAMIVUDINE
  14. ZETIA [Concomitant]
     Active Substance: EZETIMIBE
  15. AMLODIPINE;OLMESARTAN [Concomitant]
     Active Substance: AMLODIPINE\OLMESARTAN
  16. ATRIPLA [Suspect]
     Active Substance: EFAVIRENZ\EMTRICITABINE\TENOFOVIR DISOPROXIL FUMARATE
     Indication: HIV INFECTION
     Dosage: UNK
     Route: 048
     Dates: start: 20121229, end: 201501
  17. JULUCA [Concomitant]
     Active Substance: DOLUTEGRAVIR SODIUM\RILPIVIRINE HYDROCHLORIDE
  18. NORVIR [Concomitant]
     Active Substance: RITONAVIR
  19. XARELTO [Concomitant]
     Active Substance: RIVAROXABAN

REACTIONS (10)
  - Emotional distress [Not Recovered/Not Resolved]
  - Fatigue [Unknown]
  - Pain [Not Recovered/Not Resolved]
  - Chronic kidney disease [Not Recovered/Not Resolved]
  - Acute kidney injury [Not Recovered/Not Resolved]
  - Blood creatinine increased [Unknown]
  - Anxiety [Unknown]
  - Cerebrovascular accident [Unknown]
  - Cerebrovascular accident [Unknown]
  - Anhedonia [Unknown]

NARRATIVE: CASE EVENT DATE: 2013
